FAERS Safety Report 5860363-7 (Version None)
Quarter: 2008Q3

REPORT INFORMATION
  Report Type: 
  Country: None (occurrence: None)
  Receive Date: 20080827
  Receipt Date: 20080122
  Transmission Date: 20090109
  Serious: No
  Sender: FDA-Public Use
  Company Number: US-ABBOTT-07P-163-0416049-00

PATIENT
  Sex: Male
  Weight: 67.646 kg

DRUGS (4)
  1. COATED PDS [Suspect]
     Indication: BLOOD CHOLESTEROL
     Route: 048
     Dates: start: 20070903
  2. COATED PDS [Suspect]
     Dosage: WHITE
     Route: 048
  3. ACETYLSALICYLIC ACID SRT [Concomitant]
     Indication: PROPHYLAXIS
  4. ACETYLSALICYLIC ACID SRT [Concomitant]
     Indication: ADVERSE DRUG REACTION

REACTIONS (1)
  - FLUSHING [None]
